FAERS Safety Report 11377614 (Version 2)
Quarter: 2015Q3

REPORT INFORMATION
  Report Type: Spontaneous
  Country: US (occurrence: US)
  Receive Date: 20150811
  Receipt Date: 20150903
  Transmission Date: 20151125
  Serious: No
  Sender: FDA-Public Use
  Company Number: US-ELI_LILLY_AND_COMPANY-US200903002700

PATIENT
  Age: 53 Year
  Sex: Female

DRUGS (5)
  1. HUMALOG MIX75/25 [Suspect]
     Active Substance: INSULIN LISPRO
     Dates: start: 2007
  2. HUMULIN 70/30 [Suspect]
     Active Substance: INSULIN HUMAN
  3. NOVOLOG [Concomitant]
     Active Substance: INSULIN ASPART
     Dates: end: 2007
  4. HUMALOG MIX75/25 [Suspect]
     Active Substance: INSULIN LISPRO
     Indication: DIABETES MELLITUS
     Dates: start: 2007
  5. BYETTA [Concomitant]
     Active Substance: EXENATIDE

REACTIONS (10)
  - Blood glucose increased [Recovered/Resolved]
  - Drug ineffective [Recovered/Resolved]
  - Pruritus generalised [Recovered/Resolved]
  - Drug resistance [Unknown]
  - Malaise [Unknown]
  - Burning sensation [Recovered/Resolved]
  - Eye irritation [Recovered/Resolved]
  - Flushing [Recovered/Resolved]
  - Burning sensation [Unknown]
  - Anxiety [Unknown]

NARRATIVE: CASE EVENT DATE: 20090307
